FAERS Safety Report 6432294-5 (Version None)
Quarter: 2009Q4

REPORT INFORMATION
  Report Type: 
  Country: None (occurrence: None)
  Receive Date: 20091105
  Receipt Date: 20091027
  Transmission Date: 20100525
  Serious: Yes (Other)
  Sender: FDA-Public Use
  Company Number: 2009SP033604

PATIENT
  Age: 31 Year
  Sex: Female
  Weight: 70 kg

DRUGS (2)
  1. NUVARING [Suspect]
     Indication: CONTRACEPTION
     Dosage: UNK; VAG
     Route: 067
     Dates: start: 20050101, end: 20091026
  2. PURAN T4 [Concomitant]

REACTIONS (5)
  - CANDIDIASIS [None]
  - COMPLICATION OF DEVICE INSERTION [None]
  - DEVICE BREAKAGE [None]
  - HYPERTHYROIDISM [None]
  - VULVOVAGINAL DISCOMFORT [None]
